FAERS Safety Report 12795849 (Version 7)
Quarter: 2018Q4

REPORT INFORMATION
  Report Type: Spontaneous
  Country: US (occurrence: US)
  Receive Date: 20160929
  Receipt Date: 20181024
  Transmission Date: 20190204
  Serious: Yes (Other)
  Sender: FDA-Public Use
  Company Number: US-PFIZER INC-2016451736

PATIENT
  Age: 46 Year
  Sex: Female
  Weight: 112.4 kg

DRUGS (3)
  1. LYRICA [Suspect]
     Active Substance: PREGABALIN
     Dosage: 150 MG, 1 CAPSULE EVERYDAY AT BEDTIME
     Route: 048
  2. LYRICA [Suspect]
     Active Substance: PREGABALIN
     Indication: SPINAL OSTEOARTHRITIS
     Dosage: 150 MG, ONCE DAILY AT BEDTIME
     Route: 048
  3. LYRICA [Suspect]
     Active Substance: PREGABALIN
     Indication: INTERVERTEBRAL DISC DISPLACEMENT
     Dosage: 50 MG, UNK

REACTIONS (5)
  - Memory impairment [Unknown]
  - Drug dependence [Unknown]
  - Pain [Unknown]
  - Feeling abnormal [Unknown]
  - Weight increased [Unknown]
